FAERS Safety Report 5287165-7 (Version None)
Quarter: 2007Q2

REPORT INFORMATION
  Report Type: 
  Country: None (occurrence: None)
  Receive Date: 20070404
  Receipt Date: 20070323
  Transmission Date: 20071010
  Serious: Yes (Life-Threatening, Hospitalization, Other)
  Sender: FDA-Public Use
  Company Number: JP-PFIZER INC-2007018826

PATIENT
  Sex: Male
  Weight: 65.8 kg

DRUGS (11)
  1. AZULFIDINE EN-TABS [Suspect]
     Indication: RHEUMATOID ARTHRITIS
     Route: 048
     Dates: start: 20070110, end: 20070225
  2. VFEND [Suspect]
     Route: 042
     Dates: start: 20070227, end: 20070306
  3. NEUTROGIN [Suspect]
     Dosage: DAILY DOSE:100MCG
     Route: 058
     Dates: start: 20070226, end: 20070306
  4. TIENAM [Suspect]
     Route: 042
     Dates: start: 20070225, end: 20070307
  5. LORCAM [Concomitant]
     Dates: start: 20061216, end: 20070104
  6. LOXONIN [Concomitant]
     Dates: start: 20070104, end: 20070110
  7. PREDONINE [Concomitant]
     Route: 048
  8. RISEDRONATE SODIUM HYDRATE [Concomitant]
     Route: 048
     Dates: start: 20070110, end: 20070225
  9. SELBEX [Concomitant]
     Route: 048
     Dates: start: 20070110, end: 20070225
  10. SELTOUCH [Concomitant]
     Route: 062
     Dates: start: 20070110, end: 20070225
  11. MUCOSTA [Concomitant]
     Route: 048

REACTIONS (3)
  - AGRANULOCYTOSIS [None]
  - CELLULITIS [None]
  - DRUG ERUPTION [None]
